FAERS Safety Report 4981263-0 (Version None)
Quarter: 2006Q1

REPORT INFORMATION
  Report Type: 
  Country: None (occurrence: None)
  Receive Date: 20060227
  Receipt Date: 20050223
  Transmission Date: 20060701
  Serious: Yes (Hospitalization)
  Sender: FDA-Public Use
  Company Number: WAES 0310USA01447

PATIENT
  Age: 41 Year
  Sex: Male
  Weight: 139.7079 kg

DRUGS (3)
  1. ZOCOR [Suspect]
     Indication: HYPERCHOLESTEROLAEMIA
     Dosage: 20 MG/DAILY/PO
     Route: 048
     Dates: start: 20020320, end: 20021112
  2. ACCUPRIL [Concomitant]
  3. COZAAR [Concomitant]

REACTIONS (3)
  - COUGH [None]
  - RHABDOMYOLYSIS [None]
  - THROMBOPHLEBITIS [None]
